FAERS Safety Report 6171719-X (Version None)
Quarter: 2009Q2

REPORT INFORMATION
  Report Type: 
  Country: None (occurrence: None)
  Receive Date: 20090429
  Receipt Date: 20090424
  Transmission Date: 20091009
  Serious: Yes (Hospitalization, Other)
  Sender: FDA-Public Use
  Company Number: B0568196A

PATIENT
  Sex: Female

DRUGS (15)
  1. LAMICTAL [Suspect]
     Indication: MOOD SWINGS
     Dosage: 25MG PER DAY
     Route: 048
     Dates: start: 20090307, end: 20090321
  2. PROMETHAZINE HCL [Suspect]
     Indication: INSOMNIA
     Dosage: 25MG PER DAY
     Route: 048
     Dates: start: 20071023, end: 20090325
  3. BENZALIN [Suspect]
     Indication: INSOMNIA
     Dosage: 10MG PER DAY
     Route: 048
     Dates: start: 20061121, end: 20090325
  4. DEPAKENE [Suspect]
     Indication: MOOD SWINGS
     Dosage: 200MG PER DAY
     Route: 048
     Dates: start: 20081118, end: 20090323
  5. UNKNOWN DRUG [Suspect]
     Indication: THIRST
     Dosage: 100MG THREE TIMES PER DAY
     Route: 048
     Dates: start: 20080428, end: 20090323
  6. DIAZEPAM [Suspect]
     Indication: INSOMNIA
     Dosage: 5MG THREE TIMES PER DAY
     Route: 048
     Dates: start: 20081106, end: 20090323
  7. BASEN [Suspect]
     Indication: DIABETES MELLITUS
     Dosage: .3MG THREE TIMES PER DAY
     Route: 048
     Dates: start: 20070918, end: 20090323
  8. NORVASC [Suspect]
     Indication: HYPERTENSION
     Dosage: 5MG PER DAY
     Route: 048
     Dates: start: 20070925, end: 20090321
  9. ACTOS [Suspect]
     Indication: DIABETES MELLITUS
     Dosage: 15MG PER DAY
     Route: 048
     Dates: start: 20071030, end: 20090323
  10. AMOBAN [Concomitant]
     Indication: INSOMNIA
     Dosage: 7.5MG PER DAY
     Route: 048
     Dates: start: 20061225
  11. RESLIN [Concomitant]
     Indication: INSOMNIA
     Dosage: 200MG PER DAY
     Route: 048
     Dates: start: 20080228
  12. TRYPTANOL [Concomitant]
     Indication: DEPRESSION
     Dosage: 25MG PER DAY
     Route: 048
     Dates: start: 20080331, end: 20090323
  13. GOODMIN [Concomitant]
     Indication: INSOMNIA
     Dosage: .25MG PER DAY
     Route: 048
     Dates: start: 20061120
  14. MICARDIS [Concomitant]
     Indication: HYPERTENSION
     Dosage: 40MG PER DAY
     Route: 048
     Dates: start: 20070918, end: 20090326
  15. MAGLAX [Concomitant]
     Indication: CONSTIPATION
     Dosage: 990MG PER DAY
     Route: 048
     Dates: start: 20080901, end: 20090325

REACTIONS (6)
  - CONTUSION [None]
  - DRUG HYPERSENSITIVITY [None]
  - ERYTHEMA [None]
  - FALL [None]
  - HEPATIC FUNCTION ABNORMAL [None]
  - PYREXIA [None]
